APPROVED DRUG PRODUCT: FULVESTRANT
Active Ingredient: FULVESTRANT
Strength: 250MG/5ML (50MG/ML)
Dosage Form/Route: SOLUTION;INTRAMUSCULAR
Application: N210063 | Product #001
Applicant: AVYXA HOLDINGS LLC
Approved: Aug 19, 2019 | RLD: No | RS: No | Type: DISCN